FAERS Safety Report 7970309-3 (Version None)
Quarter: 2011Q4

REPORT INFORMATION
  Report Type: 
  Country: None (occurrence: None)
  Receive Date: 20111212
  Receipt Date: 20111201
  Transmission Date: 20120403
  Serious: Yes (Life-Threatening)
  Sender: FDA-Public Use
  Company Number: FR-SANOFI-AVENTIS-2011SA079014

PATIENT
  Age: 79 Year
  Sex: Male

DRUGS (8)
  1. HYZAAR [Concomitant]
     Route: 048
  2. PLAVIX [Concomitant]
     Route: 048
  3. SIMVASTATIN [Concomitant]
     Route: 048
  4. PERMIXON [Concomitant]
     Route: 048
  5. TECHNETIUM TC 99M PENTETATE [Suspect]
     Route: 042
     Dates: start: 20111021, end: 20111021
  6. LASIX [Suspect]
     Route: 042
     Dates: start: 20111020, end: 20111020
  7. OXIDRONIC ACID [Suspect]
     Route: 042
     Dates: start: 20111021, end: 20111021
  8. ASPIRIN [Concomitant]
     Route: 048

REACTIONS (1)
  - VENTRICULAR TACHYCARDIA [None]
